FAERS Safety Report 18260559 (Version 1)
Quarter: 2020Q3

REPORT INFORMATION
  Report Type: Spontaneous
  Country: FR (occurrence: FR)
  Receive Date: 20200914
  Receipt Date: 20200914
  Transmission Date: 20201103
  Serious: Yes (Other)
  Sender: FDA-Public Use
  Company Number: FR-TEVA-2020-FR-1825721

PATIENT
  Age: 44 Year
  Sex: Female
  Weight: 52 kg

DRUGS (4)
  1. TAMOXIFENE (CITRATE DE) [Concomitant]
     Active Substance: TAMOXIFEN CITRATE
     Indication: BREAST CANCER
     Route: 048
     Dates: start: 20190407
  2. PACLITAXEL. [Suspect]
     Active Substance: PACLITAXEL
     Indication: BREAST CANCER
     Dosage: (C1 13/11/2018 ? C2 20/11/2018 ? C3 27/11/2018 ? C4 04/12/2018 ? C5 11/12/2018 ? C6 18/12/2018 ? C7
     Route: 042
     Dates: start: 20181113, end: 20190115
  3. CYCLOPHOSPHAMIDE. [Suspect]
     Active Substance: CYCLOPHOSPHAMIDE
     Indication: BREAST CANCER
     Dosage: 600MG/M2, (C1 21/08/2018 ? C2 11/09/2018 ? C3 02/10/2018 ? C4 24/10/2018)
     Route: 041
     Dates: start: 20180821, end: 20181024
  4. DOXORUBICINE [Suspect]
     Active Substance: DOXORUBICIN
     Indication: BREAST CANCER
     Dosage: 60 MG/M2, (C1 21/08/2018 ? C2 11/09/2018 ? C3 02/10/2018 ? C4 24/10/2018)
     Route: 041
     Dates: start: 20180821, end: 20181024

REACTIONS (1)
  - Ventricular dysfunction [Recovering/Resolving]

NARRATIVE: CASE EVENT DATE: 20190227
